FAERS Safety Report 11354059 (Version 1)
Quarter: 2015Q3

REPORT INFORMATION
  Report Type: Spontaneous
  Country: US (occurrence: US)
  Receive Date: 20150807
  Receipt Date: 20150807
  Transmission Date: 20151125
  Serious: No
  Sender: FDA-Public Use
  Company Number: US-JNJFOC-20140505972

PATIENT
  Age: 48 Year
  Sex: Male
  Weight: 80.74 kg

DRUGS (3)
  1. MENS ROGAINE EXTRA STRENGTH [Suspect]
     Active Substance: MINOXIDIL
     Route: 061
  2. ELOCON [Concomitant]
     Active Substance: MOMETASONE FUROATE
     Indication: ROSACEA
     Route: 065
  3. MENS ROGAINE EXTRA STRENGTH [Suspect]
     Active Substance: MINOXIDIL
     Indication: ALOPECIA
     Dosage: HALF A CAPFUL TWICE A DAY
     Route: 061
     Dates: end: 20140506

REACTIONS (3)
  - Skin burning sensation [Recovering/Resolving]
  - Acarodermatitis [Recovering/Resolving]
  - Erythema [Recovering/Resolving]

NARRATIVE: CASE EVENT DATE: 201401
